FAERS Safety Report 5327042-6 (Version None)
Quarter: 2007Q2

REPORT INFORMATION
  Report Type: 
  Country: None (occurrence: None)
  Receive Date: 20070517
  Receipt Date: 20070507
  Transmission Date: 20071010
  Serious: Yes (Hospitalization)
  Sender: FDA-Public Use
  Company Number: PHHO2005US05957

PATIENT
  Age: 77 Year
  Sex: Male
  Weight: 65.3 kg

DRUGS (15)
  1. NATEGLINIDE [Suspect]
     Indication: GLUCOSE TOLERANCE IMPAIRED
     Dosage: NO TREATMENT
     Dates: start: 20050413
  2. NATEGLINIDE [Suspect]
     Dosage: LEVEL 2
     Route: 048
     Dates: end: 20060507
  3. NATEGLINIDE [Suspect]
     Dosage: LEVEL 2
     Route: 048
     Dates: start: 20060513, end: 20060604
  4. NATEGLINIDE [Suspect]
     Dosage: NO TREATMENT
     Dates: start: 20060605, end: 20060616
  5. NATEGLINIDE [Suspect]
     Dosage: NO TREATMENT
     Dates: start: 20060508, end: 20060512
  6. NATEGLINIDE [Suspect]
     Dosage: LEVEL 1
     Route: 048
     Dates: start: 20020514
  7. NATEGLINIDE [Suspect]
     Dosage: LEVEL 2
     Route: 048
     Dates: end: 20050412
  8. VALSARTAN [Suspect]
     Indication: CARDIOVASCULAR DISORDER
     Dosage: NO TREATMENT
     Dates: start: 20050413, end: 20050516
  9. VALSARTAN [Suspect]
     Dosage: NO TREATMENT
     Route: 048
     Dates: start: 20060508, end: 20060512
  10. VALSARTAN [Suspect]
     Dosage: LEVEL 2
     Route: 048
     Dates: start: 20060513, end: 20060604
  11. VALSARTAN [Suspect]
     Dosage: NO TREATMENT
     Dates: start: 20060605, end: 20060616
  12. VALSARTAN [Suspect]
     Dosage: LEVEL 1
     Route: 048
     Dates: start: 20020514
  13. VALSARTAN [Suspect]
     Dosage: LEVEL 2
     Route: 048
     Dates: end: 20050412
  14. VALSARTAN [Suspect]
     Dosage: LEVEL 2
     Route: 048
     Dates: start: 20050517, end: 20060507
  15. ATENOLOL [Concomitant]
     Indication: HYPERTENSION
     Dosage: 12.5 MG, QD
     Route: 048
     Dates: start: 20020610, end: 20060503

REACTIONS (14)
  - ABDOMINAL DISCOMFORT [None]
  - ABDOMINAL DISTENSION [None]
  - ABDOMINAL TENDERNESS [None]
  - BENIGN COLONIC NEOPLASM [None]
  - BRADYCARDIA [None]
  - CARDIAC PACEMAKER INSERTION [None]
  - COLECTOMY [None]
  - DISEASE PROGRESSION [None]
  - INFLAMMATION [None]
  - KNEE ARTHROPLASTY [None]
  - OSTEOARTHRITIS [None]
  - SURGERY [None]
  - TACHYCARDIA [None]
  - WHITE BLOOD CELL COUNT INCREASED [None]
